FAERS Safety Report 14690948 (Version 2)
Quarter: 2018Q2

REPORT INFORMATION
  Report Type: Spontaneous
  Country: US (occurrence: US)
  Receive Date: 20180328
  Receipt Date: 20180411
  Transmission Date: 20180711
  Serious: Yes (Hospitalization)
  Sender: FDA-Public Use
  Company Number: US-TEVA-2018-US-874770

PATIENT
  Sex: Male

DRUGS (6)
  1. METFORMIN [Concomitant]
     Active Substance: METFORMIN HYDROCHLORIDE
  2. LASIX [Concomitant]
     Active Substance: FUROSEMIDE
  3. SYNRIBO [Suspect]
     Active Substance: OMACETAXINE MEPESUCCINATE
     Indication: CHRONIC MYELOID LEUKAEMIA
     Dosage: 2.6 MILLIGRAM/ 0.74 MILLILITER, 2 DAYS
     Dates: start: 20180221
  4. GLIPIZIDE. [Concomitant]
     Active Substance: GLIPIZIDE
  5. SYNRIBO [Suspect]
     Active Substance: OMACETAXINE MEPESUCCINATE
     Dosage: 2.6 MILLIGRAM/ 0.74 MILLILITER,
     Dates: start: 20170113
  6. COREG [Concomitant]
     Active Substance: CARVEDILOL

REACTIONS (1)
  - Urinary tract infection [Not Recovered/Not Resolved]
